FAERS Safety Report 7876244-3 (Version None)
Quarter: 2011Q4

REPORT INFORMATION
  Report Type: 
  Country: None (occurrence: None)
  Receive Date: 20111031
  Receipt Date: 20111024
  Transmission Date: 20120403
  Serious: Yes (Hospitalization)
  Sender: FDA-Public Use
  Company Number: US-BRISTOL-MYERS SQUIBB COMPANY-16016347

PATIENT
  Age: 10 Year
  Sex: Male
  Weight: 32 kg

DRUGS (10)
  1. VINCRISTINE SULFATE [Suspect]
     Indication: B PRECURSOR TYPE ACUTE LEUKAEMIA
     Dosage: LAST DOSE ON 12AUG2011
     Route: 042
     Dates: start: 20110526
  2. CYTARABINE [Suspect]
     Indication: B PRECURSOR TYPE ACUTE LEUKAEMIA
     Dosage: LAST DOSE ON 29JUL2011
     Route: 042
     Dates: start: 20110526
  3. FILGRASTIM [Concomitant]
  4. CYCLOPHOSPHAMIDE [Suspect]
     Indication: B PRECURSOR TYPE ACUTE LEUKAEMIA
     Dosage: LAST DOSE ON 01AUG2011
     Route: 042
     Dates: start: 20110526
  5. DEXAMETHASONE [Suspect]
     Indication: B PRECURSOR TYPE ACUTE LEUKAEMIA
     Dosage: LAST DOSE ON 18AUG2011
     Route: 048
     Dates: start: 20110526
  6. ASPARAGINASE [Suspect]
     Indication: B PRECURSOR TYPE ACUTE LEUKAEMIA
     Dosage: LAST DOSE ON 13AUG2011 ERWINIA ASPARAGINASE
     Route: 030
     Dates: start: 20110526
  7. DAUNORUBICIN HCL [Suspect]
     Indication: B PRECURSOR TYPE ACUTE LEUKAEMIA
     Dosage: LAST DOSE ON 30JUL2011
     Route: 042
     Dates: start: 20110526
  8. METHOTREXATE [Suspect]
     Indication: B PRECURSOR TYPE ACUTE LEUKAEMIA
     Dosage: LAST DOSE ON 29JUL2011
     Route: 048
     Dates: start: 20110526
  9. SPRYCEL [Suspect]
     Indication: B PRECURSOR TYPE ACUTE LEUKAEMIA
     Dosage: LAST DOSE ON 18AUG2011,RESTR ON29AUG11
     Route: 048
     Dates: start: 20110526
  10. HYDROCORTISONE [Suspect]
     Indication: B PRECURSOR TYPE ACUTE LEUKAEMIA
     Dosage: LAST DOSE ON 29JUL2011
     Dates: start: 20110526

REACTIONS (3)
  - COLITIS [None]
  - HYPOTENSION [None]
  - NAUSEA [None]
